FAERS Safety Report 12216370 (Version 1)
Quarter: 2016Q1

REPORT INFORMATION
  Report Type: Spontaneous
  Country: US (occurrence: None)
  Receive Date: 20160328
  Receipt Date: 20160328
  Transmission Date: 20160526
  Serious: Yes (Death)
  Sender: FDA-Public Use
  Company Number: None

PATIENT
  Age: 77 Year
  Sex: Female

DRUGS (11)
  1. PREDNISONE. [Concomitant]
     Active Substance: PREDNISONE
  2. FAMOTIDINE. [Concomitant]
     Active Substance: FAMOTIDINE
  3. LOVASTATIN. [Concomitant]
     Active Substance: LOVASTATIN
  4. TRACLEER [Suspect]
     Active Substance: BOSENTAN
     Indication: HEART DISEASE CONGENITAL
     Route: 048
     Dates: start: 201411, end: 201603
  5. FUROSEMIDE. [Concomitant]
     Active Substance: FUROSEMIDE
  6. LOSARTAN. [Concomitant]
     Active Substance: LOSARTAN
  7. SILDENAFIL. [Concomitant]
     Active Substance: SILDENAFIL
  8. TRACLEER [Suspect]
     Active Substance: BOSENTAN
     Indication: PULMONARY ARTERIAL HYPERTENSION
     Route: 048
     Dates: start: 201411, end: 201603
  9. AZATHIOPRINE. [Concomitant]
     Active Substance: AZATHIOPRINE
  10. TRACLEER [Suspect]
     Active Substance: BOSENTAN
     Indication: CONNECTIVE TISSUE DISORDER
     Route: 048
     Dates: start: 201411, end: 201603
  11. SPIRONOLACTONE. [Concomitant]
     Active Substance: SPIRONOLACTONE

REACTIONS (3)
  - Somnolence [None]
  - Respiratory distress [None]
  - Hypoxia [None]

NARRATIVE: CASE EVENT DATE: 20160313
